APPROVED DRUG PRODUCT: AGGRASTAT
Active Ingredient: TIROFIBAN HYDROCHLORIDE
Strength: EQ 25MG BASE/500ML (EQ 0.05MG BASE/ML)
Dosage Form/Route: SOLUTION;INTRAVENOUS
Application: N020913 | Product #001
Applicant: MEDICURE INTERNATIONAL INC
Approved: May 14, 1998 | RLD: No | RS: No | Type: DISCN